FAERS Safety Report 10678797 (Version 1)
Quarter: 2014Q4

REPORT INFORMATION
  Report Type: Report from Study
  Country: NL (occurrence: None)
  Receive Date: 20141223
  Receipt Date: 20141223
  Transmission Date: 20150529
  Serious: Yes (Hospitalization)
  Sender: FDA-Public Use
  Company Number: 2014FE03507

PATIENT
  Age: 72 Year
  Sex: Male

DRUGS (1)
  1. FIRMAGON [Suspect]
     Active Substance: DEGARELIX ACETATE
     Indication: PROSTATE CANCER
     Dosage: FORMULATION:INJECTION
     Route: 058
     Dates: start: 20140328

REACTIONS (1)
  - Subdural haematoma [None]

NARRATIVE: CASE EVENT DATE: 20141204
